FAERS Safety Report 6188329-0 (Version None)
Quarter: 2009Q2

REPORT INFORMATION
  Report Type: 
  Country: None (occurrence: None)
  Receive Date: 20090513
  Receipt Date: 20090506
  Transmission Date: 20091009
  Serious: No
  Sender: FDA-Public Use
  Company Number: US-JNJFOC-20090502151

PATIENT
  Sex: Female
  Weight: 48.54 kg

DRUGS (4)
  1. DURAGESIC-100 [Suspect]
     Indication: BACK PAIN
     Route: 062
  2. OXYCODONE HCL [Concomitant]
     Indication: BACK PAIN
     Dosage: AS NEEDED
     Route: 048
  3. TOPAMAX [Concomitant]
     Indication: MIGRAINE PROPHYLAXIS
     Route: 048
  4. WELLBUTRIN [Concomitant]
     Indication: DEPRESSION
     Route: 048

REACTIONS (4)
  - BACK PAIN [None]
  - MUSCLE SPASMS [None]
  - PRODUCT QUALITY ISSUE [None]
  - WRONG TECHNIQUE IN DRUG USAGE PROCESS [None]
